FAERS Safety Report 8499384-7 (Version None)
Quarter: 2012Q3

REPORT INFORMATION
  Report Type: 
  Country: None (occurrence: None)
  Receive Date: 20120710
  Receipt Date: 20120706
  Transmission Date: 20120928
  Serious: Yes (Death, Hospitalization)
  Sender: FDA-Public Use
  Company Number: PHHY2012DK058366

PATIENT
  Sex: Female
  Weight: 94 kg

DRUGS (4)
  1. CLOZAPINE [Suspect]
     Indication: SCHIZOPHRENIA
     Dosage: 187.5 MG, (12.5 MG IN THE MORNING AND 175 MG IN THE EVENING)
     Route: 048
     Dates: end: 20111223
  2. GLUCOSAMINE [Concomitant]
     Route: 048
  3. ESCITALOPRAM [Concomitant]
     Indication: DEPRESSION
     Dosage: UNK UKN, UNK
     Route: 048
     Dates: end: 20111231
  4. PROPRANOLOL [Concomitant]
     Dosage: 20 MG, BID
     Route: 048

REACTIONS (3)
  - SCHIZOPHRENIA [None]
  - LEUKOPENIA [None]
  - DEATH [None]
